FAERS Safety Report 7326462-8 (Version None)
Quarter: 2011Q1

REPORT INFORMATION
  Report Type: 
  Country: None (occurrence: None)
  Receive Date: 20110302
  Receipt Date: 20110220
  Transmission Date: 20110831
  Serious: Yes (Other)
  Sender: FDA-Public Use
  Company Number: US-CEPHALON-2009010237

PATIENT
  Sex: Female
  Weight: 39 kg

DRUGS (1)
  1. PROVIGIL [Suspect]
     Indication: SLEEP APNOEA SYNDROME
     Dosage: 1/2 TABLET OF UNKNOWN DOSE
     Route: 048

REACTIONS (3)
  - GASTROINTESTINAL DISORDER [None]
  - STAPHYLOCOCCAL INFECTION [None]
  - DRUG INEFFECTIVE FOR UNAPPROVED INDICATION [None]
